FAERS Safety Report 16254719 (Version 1)
Quarter: 2019Q2

REPORT INFORMATION
  Report Type: Spontaneous
  Country: FR (occurrence: FR)
  Receive Date: 20190430
  Receipt Date: 20190430
  Transmission Date: 20190711
  Serious: Yes (Other)
  Sender: FDA-Public Use
  Company Number: FR-AUROBINDO-AUR-APL-2019-023148

PATIENT

DRUGS (2)
  1. PAROXETINE. [Suspect]
     Active Substance: PAROXETINE
     Indication: MENTAL DISORDER
     Dosage: UNK
     Route: 048
  2. PRAZEPAM [Suspect]
     Active Substance: PRAZEPAM
     Indication: MENTAL DISORDER
     Dosage: UNK
     Route: 048

REACTIONS (2)
  - Optic neuropathy [Not Recovered/Not Resolved]
  - Visual acuity reduced [Not Recovered/Not Resolved]

NARRATIVE: CASE EVENT DATE: 201903
